FAERS Safety Report 5356967-0 (Version None)
Quarter: 2007Q2

REPORT INFORMATION
  Report Type: 
  Country: None (occurrence: None)
  Receive Date: 20070530
  Receipt Date: 20070108
  Transmission Date: 20071010
  Serious: Yes (Hospitalization)
  Sender: FDA-Public Use
  Company Number: US200608000456

PATIENT
  Sex: Male
  Weight: 69.8 kg

DRUGS (4)
  1. ZYPREXA [Suspect]
     Dates: start: 19940801
  2. QUETIAPINE FUMARATE [Concomitant]
  3. RISPERIDONE [Concomitant]
  4. SERTRALINE [Concomitant]

REACTIONS (1)
  - PANCREATITIS [None]
